FAERS Safety Report 8016074-5 (Version None)
Quarter: 2011Q4

REPORT INFORMATION
  Report Type: 
  Country: None (occurrence: None)
  Receive Date: 20111223
  Receipt Date: 20111209
  Transmission Date: 20120403
  Serious: Yes (Other)
  Sender: FDA-Public Use
  Company Number: 2011IMPI00335

PATIENT
  Age: 21 Year
  Sex: Male

DRUGS (1)
  1. BRENTUXIMAB  VEDOTIN (BRENTUXIMAB VEDOTIN) INJECTION [Suspect]
     Indication: PRODUCT USED FOR UNKNOWN INDICATION
     Dates: start: 20110401, end: 20111013

REACTIONS (2)
  - NEUROPATHY PERIPHERAL [None]
  - JC VIRUS TEST POSITIVE [None]
